FAERS Safety Report 8761929 (Version 3)
Quarter: 2012Q4

REPORT INFORMATION
  Report Type: 
  Country: GB (occurrence: GB)
  Receive Date: 20120830
  Receipt Date: 20120924
  Transmission Date: 20130627
  Serious: Yes (Hospitalization)
  Sender: FDA-Public Use
  Company Number: PHHY2012GB073631

PATIENT
  Age: 69 Year
  Sex: Female

DRUGS (12)
  1. DIAZEPAM [Suspect]
     Dosage: 5 mg, BID
  2. FELODIPINE [Suspect]
     Dosage: 10 mg, QD
  3. FUROSEMIDE [Suspect]
     Dosage: 40 mg, QD
  4. GLICLAZIDE [Suspect]
     Dosage: 160 mg, BID
  5. LANSOPRAZOLE [Suspect]
     Dosage: 30 mg, QD
  6. SALBUTAMOL [Suspect]
     Dosage: 2 DF, PRN
  7. ACETYLSALICYLIC ACID [Suspect]
     Dosage: 75 mg, QD
  8. PAROXETINE [Suspect]
     Dosage: 30 mg
  9. ISOSORBIDE MONONITRATE [Suspect]
     Dosage: 60 mg, QD
  10. ZOCOR [Suspect]
     Dosage: 40 mg, QD
     Route: 048
  11. HYOSCINE BUTYLBROMIDE [Suspect]
     Dosage: 20 mg, BID
  12. CYCLIZINE [Suspect]
     Dosage: 50 mg, TID

REACTIONS (1)
  - Angioedema [Unknown]
